FAERS Safety Report 14378889 (Version 1)
Quarter: 2018Q1

REPORT INFORMATION
  Report Type: Spontaneous
  Country: JP (occurrence: JP)
  Receive Date: 20180112
  Receipt Date: 20180112
  Transmission Date: 20180509
  Serious: Yes (Life-Threatening, Other)
  Sender: FDA-Public Use
  Company Number: JP-ACCORD-062683

PATIENT
  Age: 72 Year
  Sex: Male

DRUGS (4)
  1. CISPLATIN. [Suspect]
     Active Substance: CISPLATIN
     Indication: LARYNGEAL CANCER
     Dosage: TPF-INTRODUCED CHEMOTHERAPY, 60 MG/M^2 (1 DAY)
  2. FLUOROURACIL. [Suspect]
     Active Substance: FLUOROURACIL
     Indication: LARYNGEAL CANCER
     Dosage: TPF-INTRODUCED CHEMOTHERAPY, 750 MG/M^2 (5 DAYS)
  3. LEVOFLOXACIN/LEVOFLOXACIN MESYLATE [Concomitant]
     Dosage: ADMINISTERED FROM DAY 5 TO 15
  4. DOCETAXEL. [Suspect]
     Active Substance: DOCETAXEL
     Indication: LARYNGEAL CANCER
     Dosage: TPF-INTRODUCED CHEMOTHERAPY, 60 MG/M^2 (1 DAY)

REACTIONS (1)
  - Febrile neutropenia [Recovered/Resolved]
